FAERS Safety Report 15404303 (Version 1)
Quarter: 2018Q3

REPORT INFORMATION
  Report Type: Spontaneous
  Country: AT (occurrence: AT)
  Receive Date: 20180919
  Receipt Date: 20180919
  Transmission Date: 20181010
  Serious: Yes (Other)
  Sender: FDA-Public Use
  Company Number: AT-PFIZER INC-2018372261

PATIENT
  Sex: Female

DRUGS (4)
  1. LYRICA [Suspect]
     Active Substance: PREGABALIN
     Dosage: UNK
     Route: 048
     Dates: end: 201601
  2. LYRICA [Suspect]
     Active Substance: PREGABALIN
     Dosage: UP TO 3X300MG/DAY
     Route: 048
  3. LYRICA [Suspect]
     Active Substance: PREGABALIN
     Indication: PHANTOM PAIN
     Dosage: 2X 150MG/DAY
     Route: 048
     Dates: start: 201410
  4. TRAMAL [Concomitant]
     Active Substance: TRAMADOL
     Dosage: UNK, AS NEEDED
     Dates: start: 201406

REACTIONS (14)
  - Amnesia [Not Recovered/Not Resolved]
  - Pain [Recovered/Resolved]
  - Dementia [Unknown]
  - Chills [Recovered/Resolved]
  - Headache [Recovered/Resolved]
  - Memory impairment [Not Recovered/Not Resolved]
  - Withdrawal syndrome [Recovered/Resolved]
  - Mental disorder [Not Recovered/Not Resolved]
  - Panic attack [Recovered/Resolved]
  - Nausea [Recovered/Resolved]
  - Fatigue [Recovered/Resolved]
  - Loss of employment [Not Recovered/Not Resolved]
  - Sopor [Recovered/Resolved]
  - Hyperhidrosis [Recovered/Resolved]

NARRATIVE: CASE EVENT DATE: 2014
